FAERS Safety Report 21150294 (Version 1)
Quarter: 2022Q3

REPORT INFORMATION
  Report Type: Spontaneous
  Country: NL (occurrence: NL)
  Receive Date: 20220729
  Receipt Date: 20220729
  Transmission Date: 20221027
  Serious: Yes (Other)
  Sender: FDA-Public Use
  Company Number: NL-Covis Pharma Europe B.V.-2022COV02306

PATIENT

DRUGS (1)
  1. ALVESCO [Suspect]
     Active Substance: CICLESONIDE
     Indication: Asthma
     Route: 055

REACTIONS (2)
  - Asthma [Unknown]
  - Drug ineffective [Unknown]
